FAERS Safety Report 14467862 (Version 1)
Quarter: 2018Q1

REPORT INFORMATION
  Report Type: Other
  Country: US (occurrence: US)
  Receive Date: 20180131
  Receipt Date: 20180131
  Transmission Date: 20180509
  Serious: No
  Sender: FDA-Public Use
  Company Number: US-ACORDA-ACO_138276_2017

PATIENT
  Sex: Female

DRUGS (1)
  1. AMPYRA [Suspect]
     Active Substance: DALFAMPRIDINE
     Indication: PRODUCT USED FOR UNKNOWN INDICATION
     Dosage: 10 MG, Q 12 HRS
     Route: 048
     Dates: start: 20170505

REACTIONS (6)
  - Sinus disorder [Unknown]
  - Facial bones fracture [Unknown]
  - Nausea [Unknown]
  - Blood glucose increased [Unknown]
  - Oedema peripheral [Unknown]
  - Fluid retention [Unknown]
